FAERS Safety Report 25395310 (Version 2)
Quarter: 2025Q3

REPORT INFORMATION
  Report Type: Spontaneous
  Country: US (occurrence: US)
  Receive Date: 20250604
  Receipt Date: 20250819
  Transmission Date: 20251021
  Serious: No
  Sender: MILLICENT HOLDINGS
  Company Number: US-Millicent Holdings Ltd.-MILL20250248

PATIENT
  Age: 44 Year
  Sex: Female

DRUGS (3)
  1. FEMRING [Suspect]
     Active Substance: ESTRADIOL ACETATE
     Indication: Menopausal symptoms
     Route: 067
     Dates: start: 20250205, end: 20250626
  2. BUSPAR [Concomitant]
     Active Substance: BUSPIRONE HYDROCHLORIDE
     Indication: Product used for unknown indication
     Dosage: 7.5 MG, 1 TAB BID
     Route: 048
  3. ALFUZOSIN [Concomitant]
     Active Substance: ALFUZOSIN
     Indication: Cystitis
     Dosage: 10 MG, 1 TAB, QD
     Route: 048

REACTIONS (7)
  - Therapeutic product effect decreased [Unknown]
  - Menopausal symptoms [Unknown]
  - Fatigue [Unknown]
  - Breast disorder female [Unknown]
  - Hot flush [Unknown]
  - Anxiety [Unknown]
  - Sleep disorder [Unknown]

NARRATIVE: CASE EVENT DATE: 20250401
